FAERS Safety Report 13998488 (Version 1)
Quarter: 2017Q3

REPORT INFORMATION
  Report Type: Spontaneous
  Country: US (occurrence: None)
  Receive Date: 20170921
  Receipt Date: 20170921
  Transmission Date: 20171128
  Serious: Yes (Hospitalization)
  Sender: FDA-Public Use
  Company Number: None

PATIENT
  Age: 78 Year
  Sex: Female
  Weight: 46.27 kg

DRUGS (1)
  1. ELIQUIS [Suspect]
     Active Substance: APIXABAN
     Indication: PULMONARY EMBOLISM
     Dates: start: 20170215

REACTIONS (5)
  - Humerus fracture [None]
  - Lung infection [None]
  - Mouth injury [None]
  - Oesophageal obstruction [None]
  - Aspiration [None]

NARRATIVE: CASE EVENT DATE: 20170725
